FAERS Safety Report 7866815-2 (Version None)
Quarter: 2011Q4

REPORT INFORMATION
  Report Type: 
  Country: None (occurrence: None)
  Receive Date: 20111028
  Receipt Date: 20110826
  Transmission Date: 20120403
  Serious: No
  Sender: FDA-Public Use
  Company Number: US-GLAXOSMITHKLINE-A0942520B

PATIENT
  Sex: Female

DRUGS (2)
  1. ADVAIR DISKUS 100/50 [Suspect]
     Indication: CHRONIC OBSTRUCTIVE PULMONARY DISEASE
     Route: 064
  2. NO CONCURRENT MEDICATION [Concomitant]

REACTIONS (2)
  - MATERNAL EXPOSURE DURING PREGNANCY [None]
  - ADVERSE EVENT [None]
